FAERS Safety Report 9734987 (Version 4)
Quarter: 2014Q1

REPORT INFORMATION
  Report Type: Report from Study
  Country: CA (occurrence: CA)
  Receive Date: 20131206
  Receipt Date: 20140109
  Transmission Date: 20141002
  Serious: Yes (Hospitalization)
  Sender: FDA-Public Use
  Company Number: CA-ROCHE-1216672

PATIENT
  Age: 50 Year
  Sex: Male
  Weight: 70 kg

DRUGS (6)
  1. ACTEMRA [Suspect]
     Indication: RHEUMATOID ARTHRITIS
     Route: 042
     Dates: start: 20121109
  2. ACTEMRA [Suspect]
     Route: 042
     Dates: start: 20130129, end: 20130912
  3. PREDNISONE [Concomitant]
  4. PLAQUENIL [Concomitant]
  5. TRAMADOL [Concomitant]
  6. PERCOCET [Concomitant]

REACTIONS (7)
  - Pyrexia [Unknown]
  - Diverticulitis [Unknown]
  - Oropharyngeal pain [Not Recovered/Not Resolved]
  - Migraine [Not Recovered/Not Resolved]
  - Pain [Recovered/Resolved]
  - Injection site bruising [Recovered/Resolved]
  - Abdominal pain [Not Recovered/Not Resolved]
